FAERS Safety Report 12878124 (Version 1)
Quarter: 2016Q4

REPORT INFORMATION
  Report Type: Report from Study
  Country: IE (occurrence: IE)
  Receive Date: 20161024
  Receipt Date: 20161024
  Transmission Date: 20170207
  Serious: Yes (Hospitalization)
  Sender: FDA-Public Use
  Company Number: IE-AMGEN-IRLSL2016145119

PATIENT
  Age: 64 Year
  Sex: Male

DRUGS (11)
  1. ONDANSETRON [Concomitant]
     Active Substance: ONDANSETRON
     Dosage: 8 MG, BID (B.D)
     Route: 050
  2. IREVEN [Concomitant]
     Dosage: 75 MG, QD (ONCE DAILY)
     Route: 050
  3. ZOTON [Concomitant]
     Active Substance: LANSOPRAZOLE
     Dosage: 30 MG, QD (ONCE DAILY)
     Route: 050
  4. CYCLIZINE [Concomitant]
     Active Substance: CYCLIZINE
     Dosage: 50 MG, TID (T.D.S)
     Route: 050
  5. OXYNORM [Concomitant]
     Active Substance: OXYCODONE HYDROCHLORIDE
     Dosage: 10 MG, BID (B.D)
     Route: 050
  6. OXYCONTIN [Concomitant]
     Active Substance: OXYCODONE HYDROCHLORIDE
     Dosage: 20 MG, BID (B.D)
     Route: 050
  7. LYRICA [Concomitant]
     Active Substance: PREGABALIN
     Dosage: 25 MG, BID (B.D)
     Route: 050
  8. ZOLNOD [Concomitant]
     Dosage: 10 MG, QHS (NIGHT)
     Route: 050
  9. NEULASTA [Suspect]
     Active Substance: PEGFILGRASTIM
     Indication: PRODUCT USED FOR UNKNOWN INDICATION
     Dosage: 6 MG, UNK (POST CHEMOTHERAPY ^3^)
     Route: 058
  10. BUSCOPAN [Concomitant]
     Active Substance: BUTYLSCOPOLAMINE BROMIDE
     Dosage: 10 MG, TID (T.D.S)
     Route: 050
  11. PARACETAMOL [Concomitant]
     Active Substance: ACETAMINOPHEN
     Dosage: 1 G, AS NECESSARY (PRN)
     Route: 050

REACTIONS (3)
  - Vomiting [Recovered/Resolved]
  - Nausea [Recovered/Resolved]
  - Dehydration [Recovered/Resolved]

NARRATIVE: CASE EVENT DATE: 201610
